FAERS Safety Report 24677733 (Version 1)
Quarter: 2024Q4

REPORT INFORMATION
  Report Type: Spontaneous
  Country: NL (occurrence: NL)
  Receive Date: 20241129
  Receipt Date: 20241129
  Transmission Date: 20250114
  Serious: Yes (Death, Hospitalization)
  Sender: ROCHE
  Company Number: NL-ROCHE-3277594

PATIENT
  Age: 67 Year
  Sex: Female

DRUGS (3)
  1. MYCOPHENOLATE MOFETIL [Suspect]
     Active Substance: MYCOPHENOLATE MOFETIL
     Indication: Prophylaxis against transplant rejection
     Dosage: 2 X 1000 MG
     Route: 065
  2. CYCLOSPORINE [Suspect]
     Active Substance: CYCLOSPORINE
     Indication: Prophylaxis against transplant rejection
     Dosage: TROUGH LEVEL 100-150 LG/L.
     Route: 065
  3. PREDNISOLONE [Suspect]
     Active Substance: PREDNISOLONE
     Indication: Prophylaxis against transplant rejection
     Route: 065

REACTIONS (8)
  - Mycobacterial infection [Fatal]
  - Septic shock [Fatal]
  - Hyperammonaemia [Fatal]
  - Myocardial infarction [Fatal]
  - Disseminated intravascular coagulation [Fatal]
  - Hepatic failure [Fatal]
  - Renal failure [Fatal]
  - Acute respiratory distress syndrome [Fatal]
